FAERS Safety Report 17572050 (Version 1)
Quarter: 2020Q1

REPORT INFORMATION
  Report Type: Spontaneous
  Country: FR (occurrence: FR)
  Receive Date: 20200323
  Receipt Date: 20200323
  Transmission Date: 20200409
  Serious: Yes (Hospitalization, Other)
  Sender: FDA-Public Use
  Company Number: FR-PFIZER INC-2020119802

PATIENT
  Age: 55 Year
  Sex: Male
  Weight: 79 kg

DRUGS (2)
  1. PEMETREXED. [Suspect]
     Active Substance: PEMETREXED
     Indication: LUNG ADENOCARCINOMA
     Dosage: 1000 MG, SINGLE
     Route: 041
     Dates: start: 20200109, end: 20200109
  2. CARBOPLATIN. [Suspect]
     Active Substance: CARBOPLATIN
     Indication: LUNG ADENOCARCINOMA
     Dosage: 800 MG, SINGLE
     Route: 041
     Dates: start: 20200109, end: 20200109

REACTIONS (11)
  - Hyperphosphataemia [Recovered/Resolved]
  - Pancytopenia [Recovered/Resolved]
  - Hypomagnesaemia [Recovered/Resolved]
  - Fanconi syndrome [Recovered/Resolved]
  - Acute kidney injury [Recovered/Resolved]
  - Rash vesicular [Recovered/Resolved]
  - Hypocalcaemia [Recovered/Resolved]
  - Hyponatraemia [Recovered/Resolved]
  - Erythema [Recovered/Resolved]
  - Asthenia [Recovered/Resolved]
  - Hypokalaemia [Recovered/Resolved]

NARRATIVE: CASE EVENT DATE: 20200120
